FAERS Safety Report 16521854 (Version 2)
Quarter: 2019Q4

REPORT INFORMATION
  Report Type: Report from Study
  Country: US (occurrence: US)
  Receive Date: 20190703
  Receipt Date: 20191111
  Transmission Date: 20200122
  Serious: No
  Sender: FDA-Public Use
  Company Number: US-BRISTOL-MYERS SQUIBB COMPANY-BMS-2019-064426

PATIENT
  Age: 62 Year
  Sex: Female
  Weight: 62.6 kg

DRUGS (4)
  1. APIXABAN [Suspect]
     Active Substance: APIXABAN
     Indication: PRODUCT USED FOR UNKNOWN INDICATION
     Dosage: 5 MILLIGRAM, BID
     Route: 048
     Dates: start: 20190701
  2. XANAX [Concomitant]
     Active Substance: ALPRAZOLAM
     Indication: PRODUCT USED FOR UNKNOWN INDICATION
     Dosage: UNK
     Route: 065
  3. CARDIZEM [Concomitant]
     Active Substance: DILTIAZEM HYDROCHLORIDE
     Indication: PRODUCT USED FOR UNKNOWN INDICATION
     Route: 065
  4. APIXABAN [Suspect]
     Active Substance: APIXABAN
     Indication: DEEP VEIN THROMBOSIS
     Dosage: 10 MILLIGRAM, BID (TWO 5 MG TABLET TWICE DAILY)
     Route: 048
     Dates: start: 20190628

REACTIONS (5)
  - Intentional underdose [Unknown]
  - Somnolence [Unknown]
  - Anxiety disorder [Unknown]
  - Product dose omission [Unknown]
  - Memory impairment [Unknown]

NARRATIVE: CASE EVENT DATE: 20190628
